FAERS Safety Report 25384843 (Version 1)
Quarter: 2025Q2

REPORT INFORMATION
  Report Type: Spontaneous
  Country: GB (occurrence: GB)
  Receive Date: 20250602
  Receipt Date: 20250602
  Transmission Date: 20250716
  Serious: Yes (Other)
  Sender: CSL BEHRING
  Company Number: None

PATIENT
  Age: 77 Year
  Sex: Female

DRUGS (1)
  1. HIZENTRA [Suspect]
     Active Substance: HUMAN IMMUNOGLOBULIN G
     Indication: Adverse drug reaction
     Dosage: 7 G, QW
     Route: 065

REACTIONS (3)
  - Speech disorder developmental [Unknown]
  - Malaise [Unknown]
  - Oral pain [Unknown]

NARRATIVE: CASE EVENT DATE: 20250527
